FAERS Safety Report 13474487 (Version 8)
Quarter: 2018Q1

REPORT INFORMATION
  Report Type: Spontaneous
  Country: IE (occurrence: IE)
  Receive Date: 20170424
  Receipt Date: 20180131
  Transmission Date: 20180508
  Serious: Yes (Hospitalization, Other)
  Sender: FDA-Public Use
  Company Number: IE-MYLANLABS-2016M1043519

PATIENT
  Age: 43 Year
  Sex: Male

DRUGS (6)
  1. CLOZARIL [Suspect]
     Active Substance: CLOZAPINE
     Dosage: 250 MG, UNK
     Route: 048
     Dates: start: 20161010, end: 20170415
  2. RISPERIDONE. [Concomitant]
     Active Substance: RISPERIDONE
     Indication: PRODUCT USED FOR UNKNOWN INDICATION
     Dosage: 3 MG, QD
     Route: 048
  3. CLOZARIL [Suspect]
     Active Substance: CLOZAPINE
     Dosage: 500 MG, UNK
     Route: 048
  4. CLOZARIL [Suspect]
     Active Substance: CLOZAPINE
     Indication: SCHIZOPHRENIA
     Dosage: UNK
     Route: 048
     Dates: start: 20140429
  5. CLOZARIL [Suspect]
     Active Substance: CLOZAPINE
     Dosage: 40 DF, UNK
     Route: 048
     Dates: start: 20161001, end: 20161001
  6. CLOZARIL [Suspect]
     Active Substance: CLOZAPINE
     Dosage: 42 DF, UNK
     Route: 048
     Dates: start: 2017

REACTIONS (10)
  - Seizure [Unknown]
  - Neutrophil count increased [Recovered/Resolved]
  - Overdose [Unknown]
  - Myocardial infarction [Unknown]
  - Embolism [Unknown]
  - White blood cell count increased [Recovered/Resolved]
  - Troponin increased [Recovered/Resolved]
  - C-reactive protein increased [Unknown]
  - Tachycardia [Unknown]
  - Arteriogram coronary abnormal [Unknown]

NARRATIVE: CASE EVENT DATE: 20161001
